FAERS Safety Report 7250199-7 (Version None)
Quarter: 2011Q1

REPORT INFORMATION
  Report Type: 
  Country: None (occurrence: None)
  Receive Date: 20110128
  Receipt Date: 20110113
  Transmission Date: 20110831
  Serious: Yes (Hospitalization)
  Sender: FDA-Public Use
  Company Number: JP-BAYER-2011-004642

PATIENT
  Sex: Male
  Weight: 61 kg

DRUGS (7)
  1. NEXAVAR [Suspect]
     Indication: HEPATIC NEOPLASM MALIGNANT
     Dosage: 400 MG, QD
     Route: 048
     Dates: start: 20100913, end: 20110112
  2. OMEPRAL [Concomitant]
     Dosage: 10 MG, QD
     Route: 048
  3. KERATINAMIN [Concomitant]
     Dosage: UNK
     Route: 061
     Dates: start: 20100913
  4. NU LOTAN [Concomitant]
     Dosage: 50 MG, QD
     Route: 048
  5. ALDACTONE [Concomitant]
     Dosage: 50 MG, QD
     Route: 048
  6. LASIX [Concomitant]
     Dosage: 40 MG, QD
     Route: 048
  7. PROHEPARUM [Concomitant]
     Dosage: 6 DF, QD
     Route: 048

REACTIONS (1)
  - HEPATIC ENCEPHALOPATHY [None]
